FAERS Safety Report 23990902 (Version 1)
Quarter: 2024Q2

REPORT INFORMATION
  Report Type: Spontaneous
  Country: US (occurrence: US)
  Receive Date: 20240619
  Receipt Date: 20240619
  Transmission Date: 20240716
  Serious: No
  Sender: FDA-Public Use
  Company Number: US-SA-2024SA176229

PATIENT
  Age: 33 Year
  Sex: Male

DRUGS (2)
  1. ALPROLIX [Suspect]
     Active Substance: EFTRENONACOG ALFA
     Indication: Prophylaxis
     Dosage: 8200 U; ONCE WEEKLY FOR PROPHYLAXIS DOSING AND DAILY FOR ONE DOSE ON DEMAND FOR A BLEED
     Route: 065
  2. ALPROLIX [Suspect]
     Active Substance: EFTRENONACOG ALFA
     Indication: Prophylaxis
     Dosage: 8200 U; ONCE WEEKLY FOR PROPHYLAXIS DOSING AND DAILY FOR ONE DOSE ON DEMAND FOR A BLEED
     Route: 065

REACTIONS (1)
  - Blood urine present [Recovered/Resolved]

NARRATIVE: CASE EVENT DATE: 20240603
